FAERS Safety Report 24418299 (Version 1)
Quarter: 2024Q4

REPORT INFORMATION
  Report Type: Spontaneous
  Country: US (occurrence: US)
  Receive Date: 20241009
  Receipt Date: 20241009
  Transmission Date: 20250114
  Serious: No
  Sender: SANOFI AVENTIS
  Company Number: US-SA-2024SA287765

PATIENT
  Age: 29 Year
  Sex: Male

DRUGS (6)
  1. DUPIXENT [Suspect]
     Active Substance: DUPILUMAB
     Indication: Dermatitis atopic
     Dosage: 300 MG
     Route: 058
     Dates: start: 20230314
  2. ADDERALL [Concomitant]
     Active Substance: AMPHETAMINE ASPARTATE\AMPHETAMINE SULFATE\DEXTROAMPHETAMINE SACCHARATE\DEXTROAMPHETAMINE SULFATE
     Route: 048
  3. CALCIUM [Concomitant]
     Active Substance: CALCIUM
     Route: 048
  4. MAGNESIUM [Concomitant]
     Active Substance: MAGNESIUM
     Route: 048
  5. FISH OIL [Concomitant]
     Active Substance: FISH OIL
     Route: 048
  6. VITAMIN C [Concomitant]
     Active Substance: ASCORBIC ACID
     Route: 048

REACTIONS (1)
  - Dermatitis atopic [Unknown]

NARRATIVE: CASE EVENT DATE: 20240913
